FAERS Safety Report 16375208 (Version 1)
Quarter: 2019Q2

REPORT INFORMATION
  Report Type: Other
  Country: CA (occurrence: CA)
  Receive Date: 20190531
  Receipt Date: 20190531
  Transmission Date: 20190711
  Serious: Yes (Hospitalization, Other)
  Sender: FDA-Public Use
  Company Number: CA-APOTEX-2019AP014979

PATIENT
  Age: 82 Year
  Sex: Male

DRUGS (3)
  1. VENTOLIN HFA [Suspect]
     Active Substance: ALBUTEROL SULFATE
     Indication: PRODUCT USED FOR UNKNOWN INDICATION
     Dosage: UNK
     Route: 065
  2. SALBUTAMOL [Suspect]
     Active Substance: ALBUTEROL
     Indication: PRODUCT USED FOR UNKNOWN INDICATION
     Dosage: UNK, INHALATION
     Route: 050
  3. NUCALA [Suspect]
     Active Substance: MEPOLIZUMAB
     Indication: ASTHMA
     Dosage: 100 MG, UNK
     Route: 042

REACTIONS (9)
  - Nasopharyngitis [Recovering/Resolving]
  - Asthma [Recovering/Resolving]
  - Wheezing [Recovering/Resolving]
  - Poor quality sleep [Recovering/Resolving]
  - Prostate cancer [Recovering/Resolving]
  - Dyspnoea [Recovering/Resolving]
  - Pneumonia [Recovering/Resolving]
  - Loss of personal independence in daily activities [Recovering/Resolving]
  - Traumatic lung injury [Recovering/Resolving]
